FAERS Safety Report 6739210-7 (Version None)
Quarter: 2010Q2

REPORT INFORMATION
  Report Type: 
  Country: None (occurrence: None)
  Receive Date: 20100525
  Receipt Date: 20100511
  Transmission Date: 20101027
  Serious: Yes (Hospitalization)
  Sender: FDA-Public Use
  Company Number: US-JNJFOC-20100508672

PATIENT
  Age: 44 Year
  Sex: Female

DRUGS (6)
  1. FENTANYL CITRATE [Suspect]
     Indication: BREAKTHROUGH PAIN
     Route: 062
  2. ZICONOTIDE [Suspect]
     Indication: DRUG USE FOR UNKNOWN INDICATION
     Dosage: OVER A 3 MONTH PERIOD
     Route: 065
  3. ZICONOTIDE [Suspect]
     Route: 065
  4. ORAL OPIOIDS [Suspect]
     Indication: BREAKTHROUGH PAIN
     Route: 065
  5. BACLOFEN [Suspect]
     Indication: BREAKTHROUGH PAIN
     Dosage: OVER THE COURSE OF 5 MONTHS
     Route: 039
  6. BACLOFEN [Suspect]
     Route: 039

REACTIONS (4)
  - DEHYDRATION [None]
  - DRUG INEFFECTIVE [None]
  - NAUSEA [None]
  - VOMITING [None]
